FAERS Safety Report 9444333 (Version 2)
Quarter: 2013Q3

REPORT INFORMATION
  Report Type: Spontaneous
  Country: US (occurrence: US)
  Receive Date: 20130807
  Receipt Date: 20130828
  Transmission Date: 20140515
  Serious: No
  Sender: FDA-Public Use
  Company Number: US-JNJFOC-20130705747

PATIENT
  Age: 31 Year
  Sex: Male
  Weight: 104.33 kg

DRUGS (1)
  1. INVEGA SUSTENNA [Suspect]
     Indication: SCHIZOPHRENIA
     Route: 030
     Dates: start: 20120117

REACTIONS (2)
  - Underdose [Unknown]
  - Injection site extravasation [Not Recovered/Not Resolved]
